FAERS Safety Report 7383899-9 (Version None)
Quarter: 2011Q1

REPORT INFORMATION
  Report Type: 
  Country: None (occurrence: None)
  Receive Date: 20110330
  Receipt Date: 20101209
  Transmission Date: 20110831
  Serious: No
  Sender: FDA-Public Use
  Company Number: US-MYLANLABS-2010S1022709

PATIENT
  Sex: Female

DRUGS (2)
  1. LORAZEPAM [Concomitant]
     Indication: ANXIETY
  2. RISPERIDONE [Suspect]
     Indication: STRESS
     Route: 048
     Dates: start: 20101110

REACTIONS (2)
  - STRESS [None]
  - DRUG INEFFECTIVE FOR UNAPPROVED INDICATION [None]
